FAERS Safety Report 9058944 (Version 1)
Quarter: 2013Q1

REPORT INFORMATION
  Report Type: Spontaneous
  Country: US (occurrence: US)
  Receive Date: 20130211
  Receipt Date: 20130211
  Transmission Date: 20140127
  Serious: No
  Sender: FDA-Public Use
  Company Number: US-BRISTOL-MYERS SQUIBB COMPANY-16425563

PATIENT
  Age: 54 Year
  Sex: 0

DRUGS (10)
  1. METFORMIN HCL [Suspect]
  2. AMLODIPINE [Suspect]
  3. LOPID [Suspect]
  4. ACTOS [Concomitant]
  5. ACETYLSALICYLIC ACID [Concomitant]
  6. COREG [Concomitant]
  7. COUMADIN [Concomitant]
  8. COZAAR [Concomitant]
  9. PLAVIX [Concomitant]
  10. LANTUS [Concomitant]

REACTIONS (1)
  - Drug hypersensitivity [Unknown]
